FAERS Safety Report 8806373 (Version 1)
Quarter: 2012Q4

REPORT INFORMATION
  Report Type: 
  Country: US (occurrence: None)
  Receive Date: 20120919
  Receipt Date: 20120919
  Transmission Date: 20130627
  Serious: No
  Sender: FDA-Public Use
  Company Number: None

PATIENT
  Sex: Female

DRUGS (1)
  1. ADDERALL [Suspect]

REACTIONS (7)
  - Somnolence [None]
  - Product quality issue [None]
  - Drug ineffective [None]
  - Expired drug administered [None]
  - Drug dispensing error [None]
  - Fall [None]
  - Product substitution issue [None]
